FAERS Safety Report 9888383 (Version 2)
Quarter: 2014Q1

REPORT INFORMATION
  Report Type: Spontaneous
  Country: US (occurrence: US)
  Receive Date: 20140211
  Receipt Date: 20140314
  Transmission Date: 20141002
  Serious: No
  Sender: FDA-Public Use
  Company Number: US-PFIZER INC-2014033962

PATIENT
  Age: 59 Year
  Sex: Male
  Weight: 102.04 kg

DRUGS (1)
  1. BOSULIF [Suspect]
     Indication: CHRONIC MYELOID LEUKAEMIA
     Dosage: 500 MG, 1X/DAY (500MG TABLET;TAKE ONE TABLET DAILY)
     Route: 048
     Dates: start: 20131211

REACTIONS (3)
  - Diarrhoea [Unknown]
  - Rash pustular [Unknown]
  - Skin papilloma [Unknown]
